FAERS Safety Report 9470637 (Version 4)
Quarter: 2013Q4

REPORT INFORMATION
  Report Type: Spontaneous
  Country: IT (occurrence: None)
  Receive Date: 20130815
  Receipt Date: 20131024
  Transmission Date: 20140711
  Serious: Yes (Hospitalization)
  Sender: FDA-Public Use
  Company Number: AUR-APL-2013-06747

PATIENT
  Age: 70 Year
  Sex: Male

DRUGS (2)
  1. LEVOFLOXACIN [Suspect]
     Indication: INFECTION
     Dosage: (500 MG,1 D)
     Route: 048
     Dates: start: 20130501, end: 20130507
  2. GEMCITABINE HYDROCHLORIDE [Suspect]
     Indication: PANCREATIC CARCINOMA
     Dosage: (1900 MG,CYCLICAL)
     Route: 042
     Dates: start: 20130101, end: 20130429

REACTIONS (6)
  - Oedema [None]
  - Pleural effusion [None]
  - Renal failure [None]
  - Renal failure acute [None]
  - Thrombotic microangiopathy [None]
  - Haemangioma [None]
